FAERS Safety Report 6380498-2 (Version None)
Quarter: 2009Q3

REPORT INFORMATION
  Report Type: 
  Country: None (occurrence: None)
  Receive Date: 20090923
  Receipt Date: 20090911
  Transmission Date: 20100115
  Serious: Yes (Death, Hospitalization)
  Sender: FDA-Public Use
  Company Number: 8052225

PATIENT
  Age: 53 Year
  Sex: Male

DRUGS (6)
  1. PREDNISOLONE [Suspect]
  2. CYCLOPHOSPHAMIDE [Suspect]
     Indication: DIFFUSE LARGE B-CELL LYMPHOMA STAGE IV
  3. DOXORUBICIN HCL [Suspect]
  4. METHOTREXATE [Suspect]
     Indication: DIFFUSE LARGE B-CELL LYMPHOMA STAGE IV
     Dosage: ITH
     Route: 037
  5. RITUXIMAB [Suspect]
     Indication: DIFFUSE LARGE B-CELL LYMPHOMA STAGE IV
  6. VINCRISTINE [Suspect]

REACTIONS (7)
  - ENCEPHALOPATHY [None]
  - ENTEROVIRUS INFECTION [None]
  - HYPOGAMMAGLOBULINAEMIA [None]
  - LOSS OF CONSCIOUSNESS [None]
  - LYMPHOCYTIC INFILTRATION [None]
  - NEUTROPENIA [None]
  - WEIGHT DECREASED [None]
